FAERS Safety Report 8506759-6 (Version None)
Quarter: 2012Q3

REPORT INFORMATION
  Report Type: 
  Country: None (occurrence: None)
  Receive Date: 20120712
  Receipt Date: 20120706
  Transmission Date: 20120928
  Serious: No
  Sender: FDA-Public Use
  Company Number: US-PFIZER INC-2012162455

PATIENT
  Sex: Female
  Weight: 58.05 kg

DRUGS (9)
  1. SUTENT [Suspect]
     Indication: METASTATIC RENAL CELL CARCINOMA
     Dosage: 50 MG, FIRST 42 DAY CYCLE
  2. COUMADIN [Concomitant]
     Indication: THROMBOSIS
  3. HYDROCODONE [Concomitant]
     Dosage: 5/500 AS NEEDED
  4. IRON [Concomitant]
     Dosage: 3/XDAY
  5. INDERAL [Concomitant]
     Indication: MITRAL VALVE PROLAPSE
  6. DICLOFENAC [Concomitant]
  7. FLEXERIL [Concomitant]
     Dosage: AS NEEDED
  8. FENTANYL [Concomitant]
     Dosage: 25 UGM
     Route: 062
  9. DIOVAN [Concomitant]
     Indication: MITRAL VALVE PROLAPSE

REACTIONS (5)
  - FATIGUE [None]
  - NAUSEA [None]
  - CONTUSION [None]
  - ORAL PAIN [None]
  - PRURITUS [None]
